FAERS Safety Report 4405890-4 (Version None)
Quarter: 2004Q3

REPORT INFORMATION
  Report Type: 
  Country: None (occurrence: None)
  Receive Date: 20040723
  Receipt Date: 20040202
  Transmission Date: 20050211
  Serious: No
  Sender: FDA-Public Use
  Company Number: US-GLAXOSMITHKLINE-A0496043A

PATIENT
  Age: 59 Year
  Sex: Female

DRUGS (3)
  1. AVANDIA [Suspect]
     Dosage: 4MG PER DAY
     Dates: start: 20031101
  2. GLUCOVANCE [Concomitant]
  3. SYNTHROID [Concomitant]

REACTIONS (11)
  - COUGH [None]
  - FATIGUE [None]
  - FLUID RETENTION [None]
  - HEART RATE INCREASED [None]
  - HEART RATE IRREGULAR [None]
  - INCREASED APPETITE [None]
  - INCREASED UPPER AIRWAY SECRETION [None]
  - JOINT SWELLING [None]
  - OEDEMA PERIPHERAL [None]
  - POSTNASAL DRIP [None]
  - WEIGHT INCREASED [None]
